FAERS Safety Report 20501887 (Version 1)
Quarter: 2022Q1

REPORT INFORMATION
  Report Type: Spontaneous
  Country: US (occurrence: None)
  Receive Date: 20220222
  Receipt Date: 20220222
  Transmission Date: 20220423
  Serious: Yes (Hospitalization)
  Sender: FDA-Public Use
  Company Number: 2022A072646

PATIENT
  Age: 72 Year
  Sex: Female

DRUGS (1)
  1. SYMBICORT [Suspect]
     Active Substance: BUDESONIDE\FORMOTEROL FUMARATE DIHYDRATE
     Indication: Bronchospasm
     Dosage: SYMBICORT ONE INHALATION AT NIGHT AND AT TIMES SHE WILL TAKE ONE INHALATION IN THE MORNING IF SHE...
     Route: 055

REACTIONS (9)
  - Osteonecrosis [Recovering/Resolving]
  - Body height decreased [Not Recovered/Not Resolved]
  - Dysphonia [Unknown]
  - Productive cough [Unknown]
  - Wheezing [Unknown]
  - Gait disturbance [Recovering/Resolving]
  - Visual impairment [Recovered/Resolved]
  - Spinal deformity [Not Recovered/Not Resolved]
  - Off label use [Unknown]

NARRATIVE: CASE EVENT DATE: 20210101
